FAERS Safety Report 18956332 (Version 1)
Quarter: 2021Q1

REPORT INFORMATION
  Report Type: Spontaneous
  Country: US (occurrence: US)
  Receive Date: 20210302
  Receipt Date: 20210302
  Transmission Date: 20210420
  Serious: No
  Sender: FDA-Public Use
  Company Number: US-TEVA-2021-US-1884154

PATIENT
  Age: 74 Year
  Sex: Male

DRUGS (3)
  1. FENTANYL. [Concomitant]
     Active Substance: FENTANYL
     Route: 062
  2. LIDOCAINE. [Suspect]
     Active Substance: LIDOCAINE
     Indication: INTERVERTEBRAL DISC DISORDER
     Route: 062
     Dates: start: 2021
  3. LIDOCAINE. [Suspect]
     Active Substance: LIDOCAINE
     Indication: NERVE INJURY

REACTIONS (1)
  - Application site pruritus [Recovering/Resolving]

NARRATIVE: CASE EVENT DATE: 2021
